APPROVED DRUG PRODUCT: LAMOTRIGINE
Active Ingredient: LAMOTRIGINE
Strength: 25MG
Dosage Form/Route: TABLET;ORAL
Application: A078525 | Product #001 | TE Code: AB
Applicant: TARO PHARMACEUTICAL INDUSTRIES LTD
Approved: Jan 27, 2009 | RLD: No | RS: No | Type: RX